FAERS Safety Report 8308594-0 (Version None)
Quarter: 2012Q2

REPORT INFORMATION
  Report Type: 
  Country: None (occurrence: None)
  Receive Date: 20120419
  Receipt Date: 20120405
  Transmission Date: 20120825
  Serious: No
  Sender: FDA-Public Use
  Company Number: TUK2012A00081

PATIENT
  Age: 58 Year
  Sex: Male

DRUGS (6)
  1. PIOGLITAZONE [Suspect]
     Indication: PRODUCT USED FOR UNKNOWN INDICATION
     Dosage: UNK (15 MG), UNK (30 MG)
     Dates: start: 20100601
  2. PIOGLITAZONE [Suspect]
     Indication: PRODUCT USED FOR UNKNOWN INDICATION
     Dosage: UNK (15 MG), UNK (30 MG)
     Dates: start: 20100401
  3. RAMIPRIL [Concomitant]
  4. METFORMIN HCL [Concomitant]
  5. SIMVASTATIN [Concomitant]
  6. OMEPRAZOLE [Concomitant]

REACTIONS (1)
  - BLADDER TRANSITIONAL CELL CARCINOMA STAGE I [None]
